FAERS Safety Report 7302131 (Version 2)
Quarter: 2014Q3

REPORT INFORMATION
  Report Type: Spontaneous
  Country: US (occurrence: None)
  Receive Date: 20100212
  Receipt Date: 20140912
  Transmission Date: 20150326
  Serious: Yes (Hospitalization, Other)
  Sender: FDA-Public Use
  Company Number: 2009S1006440

PATIENT
  Age: 46 Year
  Sex: Female

DRUGS (7)
  1. PREVACID [Concomitant]
     Active Substance: LANSOPRAZOLE
  2. TRIAVIL (PERPHENAZINE, AMITRIPTYLINE HYDROCHLORIDE) [Concomitant]
  3. SODIUM PHOSPHATE [Suspect]
     Active Substance: SODIUM PHOSPHATE
     Indication: COLONOSCOPY
     Dosage: TOTAL ORAL
     Route: 048
     Dates: start: 20020604, end: 20020604
  4. DIOVAN [Concomitant]
     Active Substance: VALSARTAN
  5. TENORETIC (CHLORTALIDONE,ATENOLOL [Concomitant]
  6. ATACAND [Concomitant]
     Active Substance: CANDESARTAN CILEXETIL
  7. SYNTHROID [Concomitant]
     Active Substance: LEVOTHYROXINE SODIUM

REACTIONS (7)
  - Renal failure acute [None]
  - Decreased appetite [None]
  - Renal disorder [None]
  - Asthenia [None]
  - Tubulointerstitial nephritis [None]
  - Fatigue [None]
  - Dehydration [None]

NARRATIVE: CASE EVENT DATE: 20020610
